FAERS Safety Report 22174017 (Version 1)
Quarter: 2023Q2

REPORT INFORMATION
  Report Type: Spontaneous
  Country: GB (occurrence: GB)
  Receive Date: 20230404
  Receipt Date: 20230404
  Transmission Date: 20230721
  Serious: Yes (Hospitalization, Other)
  Sender: FDA-Public Use
  Company Number: GB-MHRA-MED-202303291630172330-ZBHDL

PATIENT
  Age: 87 Year
  Sex: Female
  Weight: 68 kg

DRUGS (6)
  1. FUROSEMIDE [Suspect]
     Active Substance: FUROSEMIDE
     Dosage: 80 MG ONCE IN THE MORNING AND 40 MG AT MID DAY
     Route: 065
  2. BISOPROLOL [Suspect]
     Active Substance: BISOPROLOL
     Dosage: 10MG ONCE A DAY
     Route: 065
  3. DIGOXIN [Suspect]
     Active Substance: DIGOXIN
     Dosage: 125 MCG ONCE A DAY
     Route: 065
  4. EPLERENONE [Suspect]
     Active Substance: EPLERENONE
     Dosage: 25 MG ONCE A DAY
     Route: 065
  5. LOSARTAN [Suspect]
     Active Substance: LOSARTAN
     Dosage: 150 MG ONCE A DAY
     Route: 065
  6. RIVAROXABAN [Suspect]
     Active Substance: RIVAROXABAN
     Dosage: 15 MG ONCE A DAY
     Route: 065

REACTIONS (5)
  - Bradycardia [Recovering/Resolving]
  - Tachypnoea [Recovered/Resolved]
  - Abdominal pain [Recovered/Resolved]
  - Fatigue [Recovered/Resolved]
  - Vomiting [Recovered/Resolved]
